FAERS Safety Report 9440576 (Version 2)
Quarter: 2014Q1

REPORT INFORMATION
  Report Type: Report from Study
  Country: US (occurrence: US)
  Receive Date: 20130805
  Receipt Date: 20140320
  Transmission Date: 20141002
  Serious: Yes (Hospitalization)
  Sender: FDA-Public Use
  Company Number: US-TEVA-415866USA

PATIENT
  Age: 69 Year
  Sex: Male
  Weight: 96 kg

DRUGS (19)
  1. TREANDA [Suspect]
     Indication: CHRONIC LYMPHOCYTIC LEUKAEMIA
     Route: 042
  2. TREANDA [Suspect]
     Dosage: UID/QD
     Route: 042
     Dates: start: 20130612, end: 20130613
  3. RITUXIMAB [Suspect]
     Indication: CHRONIC LYMPHOCYTIC LEUKAEMIA
     Route: 042
  4. RITUXIMAB [Suspect]
     Dosage: UNKNOWN/D
     Dates: start: 20130612
  5. PLACEBO [Suspect]
     Indication: CHRONIC LYMPHOCYTIC LEUKAEMIA
     Route: 048
  6. PLACEBO [Suspect]
     Dosage: 420 MILLIGRAM DAILY;
     Dates: start: 20130612
  7. PLACEBO [Suspect]
     Dosage: 420 MILLIGRAM DAILY;
     Dates: start: 20130613
  8. ZANTAC [Concomitant]
     Dosage: 150 MILLIGRAM DAILY;
     Route: 048
  9. LANTUS [Concomitant]
     Indication: DIABETES MELLITUS
     Route: 058
  10. DIOVAN [Concomitant]
     Dosage: 160 MILLIGRAM DAILY;
     Route: 048
  11. SIMVASTIN [Concomitant]
     Dosage: 80 MILLIGRAM DAILY;
  12. ACYCLOVIR [Concomitant]
     Dosage: 800 MILLIGRAM DAILY;
     Route: 048
  13. ASPIRIN [Concomitant]
     Dosage: 81 MILLIGRAM DAILY;
     Route: 048
  14. ONDANSETRON [Concomitant]
     Indication: NAUSEA
     Route: 048
  15. CODEINE W/GUAIFENESIN [Concomitant]
     Indication: COUGH
     Route: 048
  16. LORAZEPAM [Concomitant]
     Indication: ANXIETY
     Route: 048
  17. COMPAZINE [Concomitant]
     Indication: NAUSEA
     Route: 048
  18. NOVOLOG [Concomitant]
     Indication: DIABETES MELLITUS
     Dosage: 10-12 UNITS WITH MEALS
     Route: 058
  19. CALCIUM CARBONATE AND VITAMIN D [Concomitant]
     Dosage: 1200 MILLIGRAM DAILY;

REACTIONS (2)
  - Angina pectoris [Recovered/Resolved]
  - Renal failure acute [Recovering/Resolving]
